FAERS Safety Report 9370228 (Version 1)
Quarter: 2013Q2

REPORT INFORMATION
  Report Type: Spontaneous
  Country: US (occurrence: None)
  Receive Date: 20130624
  Receipt Date: 20130624
  Transmission Date: 20140414
  Serious: Yes (Other)
  Sender: FDA-Public Use
  Company Number: 2013P1009711

PATIENT
  Age: 28 Year
  Sex: Female

DRUGS (2)
  1. DIGOXIN [Suspect]
  2. PROSTAGLANDIN F2 ALPHA [Concomitant]
     Dosage: VAGINAL INSERT.

REACTIONS (15)
  - Palpitations [None]
  - Dyspnoea [None]
  - Asthenia [None]
  - Malaise [None]
  - Paralysis [None]
  - Respiratory failure [None]
  - Sinus bradycardia [None]
  - Hyperkalaemia [None]
  - Toxicity to various agents [None]
  - Abdominal pain [None]
  - Headache [None]
  - Hypoaesthesia [None]
  - Dizziness [None]
  - Toxicity to various agents [None]
  - Exposure during pregnancy [None]
